FAERS Safety Report 8182914-2 (Version None)
Quarter: 2012Q1

REPORT INFORMATION
  Report Type: 
  Country: None (occurrence: None)
  Receive Date: 20120305
  Receipt Date: 20120223
  Transmission Date: 20120608
  Serious: Yes (Other)
  Sender: FDA-Public Use
  Company Number: NL-BRISTOL-MYERS SQUIBB COMPANY-16418139

PATIENT
  Age: 65 Year
  Sex: Female

DRUGS (1)
  1. IRBESARTAN + HYDROCHLOROTHIAZIDE [Suspect]
     Dosage: 1 DF = 150/12.5 MG
     Route: 048
     Dates: start: 20090301

REACTIONS (1)
  - LUPUS-LIKE SYNDROME [None]
